FAERS Safety Report 9850698 (Version 1)
Quarter: 2014Q1

REPORT INFORMATION
  Report Type: Spontaneous
  Country: NO (occurrence: NO)
  Receive Date: 20140128
  Receipt Date: 20140128
  Transmission Date: 20141002
  Serious: Yes (Other)
  Sender: FDA-Public Use
  Company Number: CHPA2014NO001297

PATIENT
  Sex: Male

DRUGS (1)
  1. NICOTINELL [Suspect]
     Dosage: UNK

REACTIONS (1)
  - Drug dependence [Not Recovered/Not Resolved]
